FAERS Safety Report 4935060-2 (Version None)
Quarter: 2006Q1

REPORT INFORMATION
  Report Type: 
  Country: None (occurrence: None)
  Receive Date: 20060302
  Receipt Date: 20060215
  Transmission Date: 20060701
  Serious: Yes (Other)
  Sender: FDA-Public Use
  Company Number: US200602003415

PATIENT
  Sex: Male

DRUGS (2)
  1. HUMULIN N [Suspect]
     Indication: DIABETES MELLITUS
     Dates: start: 19800101
  2. HUMULIN R [Suspect]
     Indication: DIABETES MELLITUS
     Dates: start: 19800101

REACTIONS (5)
  - BLOOD GLUCOSE INCREASED [None]
  - COLON CANCER [None]
  - DIALYSIS [None]
  - MALAISE [None]
  - RENAL TRANSPLANT [None]
